FAERS Safety Report 8017978-X (Version None)
Quarter: 2011Q4

REPORT INFORMATION
  Report Type: 
  Country: None (occurrence: None)
  Receive Date: 20111228
  Receipt Date: 20111216
  Transmission Date: 20120403
  Serious: Yes (Hospitalization, Other)
  Sender: FDA-Public Use
  Company Number: 2011P1014840

PATIENT
  Age: 10 Month
  Sex: Male
  Weight: 9.9791 kg

DRUGS (3)
  1. PHENOBARBITAL TAB [Suspect]
     Indication: CONVULSION
     Dosage: 30 MG;BID
     Dates: start: 20111101
  2. ACETAMINOPHEN [Concomitant]
  3. IBUPROFEN [Concomitant]

REACTIONS (2)
  - PYREXIA [None]
  - RASH [None]
